FAERS Safety Report 8394147-5 (Version None)
Quarter: 2012Q1

REPORT INFORMATION
  Report Type: 
  Country: None (occurrence: None)
  Receive Date: 20120323
  Receipt Date: 20110601
  Transmission Date: 20120608
  Serious: Yes (Other)
  Sender: FDA-Public Use
  Company Number: 163-21880-11050792

PATIENT
  Age: 79 Year
  Sex: Female
  Weight: 77.1115 kg

DRUGS (11)
  1. BLO0D (BLOOD AND RELATED PRODUCTS) [Concomitant]
  2. FOLIC ACID [Concomitant]
  3. AMLODIPINE [Concomitant]
  4. CENTRUM SILVER (CENTRUM SILVER) [Concomitant]
  5. ASPIRIN [Concomitant]
  6. LORAZEPAM [Concomitant]
  7. CALCITONIN (CALCITONIN) [Concomitant]
  8. PANTOPRAZOLE SODIUM [Concomitant]
  9. REVLIMID [Suspect]
     Indication: MULTIPLE MYELOMA
     Dosage: 20 MG, 21/7, PO ; 15 MG, 21/7, PO
     Route: 048
     Dates: start: 20110501
  10. REVLIMID [Suspect]
     Indication: MULTIPLE MYELOMA
     Dosage: 20 MG, 21/7, PO ; 15 MG, 21/7, PO
     Route: 048
     Dates: start: 20100717
  11. HYMAX (HYOSCINE BUTYLBROMIDE) [Concomitant]

REACTIONS (3)
  - HAEMOGLOBIN DECREASED [None]
  - PLATELET COUNT DECREASED [None]
  - WHITE BLOOD CELL COUNT DECREASED [None]
